FAERS Safety Report 20481280 (Version 1)
Quarter: 2022Q1

REPORT INFORMATION
  Report Type: Spontaneous
  Country: US (occurrence: None)
  Receive Date: 20220216
  Receipt Date: 20220216
  Transmission Date: 20220423
  Serious: No
  Sender: FDA-Public Use
  Company Number: None

PATIENT
  Sex: Female

DRUGS (1)
  1. ENBREL [Suspect]
     Active Substance: ETANERCEPT
     Indication: Psoriatic arthropathy
     Dosage: OTHER QUANTITY : 50MG/ML;?FREQUENCY : WEEKLY;?
     Route: 058
     Dates: start: 20210503

REACTIONS (4)
  - Rash [None]
  - Inflammation [None]
  - Drug ineffective [None]
  - Condition aggravated [None]
